APPROVED DRUG PRODUCT: ERTACZO
Active Ingredient: SERTACONAZOLE NITRATE
Strength: 2%
Dosage Form/Route: CREAM;TOPICAL
Application: N021385 | Product #001
Applicant: LACER PHARMA LLC
Approved: Dec 10, 2003 | RLD: Yes | RS: Yes | Type: RX